FAERS Safety Report 10032637 (Version 1)
Quarter: 2014Q1

REPORT INFORMATION
  Report Type: Spontaneous
  Country: US (occurrence: US)
  Receive Date: 20140324
  Receipt Date: 20140324
  Transmission Date: 20141002
  Serious: No
  Sender: FDA-Public Use
  Company Number: US-PFIZER INC-2014081796

PATIENT
  Sex: Male

DRUGS (2)
  1. XANAX [Suspect]
     Dosage: UNK
  2. AMBIEN [Suspect]
     Dosage: UNK

REACTIONS (3)
  - Withdrawal syndrome [Unknown]
  - Chills [Unknown]
  - Tremor [Unknown]
